FAERS Safety Report 17823878 (Version 1)
Quarter: 2020Q2

REPORT INFORMATION
  Report Type: Spontaneous
  Country: IT (occurrence: IT)
  Receive Date: 20200526
  Receipt Date: 20200526
  Transmission Date: 20200714
  Serious: Yes (Other)
  Sender: FDA-Public Use
  Company Number: IT-SUNPHARMA-2019RR-225223AA

PATIENT
  Age: 80 Year
  Sex: Male

DRUGS (5)
  1. BETAMETHASONE. [Suspect]
     Active Substance: BETAMETHASONE
     Indication: PYREXIA
     Route: 065
  2. CEFTRIAXONE. [Suspect]
     Active Substance: CEFTRIAXONE
     Indication: PYREXIA
     Route: 065
  3. PARACETAMOL [Suspect]
     Active Substance: ACETAMINOPHEN
     Indication: PYREXIA
     Route: 065
  4. LEVOFLOXACIN. [Suspect]
     Active Substance: LEVOFLOXACIN
     Indication: AORTITIS
     Dosage: 750 MILLIGRAMS, DAILY
     Route: 048
  5. LEVOFLOXACIN. [Suspect]
     Active Substance: LEVOFLOXACIN
     Indication: PNEUMONIA

REACTIONS (2)
  - Drug ineffective [Unknown]
  - Aortic rupture [Unknown]
